FAERS Safety Report 12910899 (Version 2)
Quarter: 2016Q4

REPORT INFORMATION
  Report Type: Spontaneous
  Country: US (occurrence: US)
  Receive Date: 20161104
  Receipt Date: 20161212
  Transmission Date: 20170207
  Serious: Yes (Hospitalization)
  Sender: FDA-Public Use
  Company Number: US-JNJFOC-20161015944

PATIENT
  Age: 45 Year
  Sex: Female

DRUGS (5)
  1. XARELTO [Suspect]
     Active Substance: RIVAROXABAN
     Indication: ANKLE OPERATION
     Dosage: 15 - 30 MG
     Route: 048
     Dates: start: 20151229, end: 20160331
  2. XARELTO [Suspect]
     Active Substance: RIVAROXABAN
     Indication: ANKLE OPERATION
     Route: 048
     Dates: start: 2016, end: 20160507
  3. XARELTO [Suspect]
     Active Substance: RIVAROXABAN
     Indication: DEEP VEIN THROMBOSIS
     Route: 048
     Dates: start: 2016, end: 20160507
  4. XARELTO [Suspect]
     Active Substance: RIVAROXABAN
     Indication: DEEP VEIN THROMBOSIS
     Dosage: 15 - 30 MG
     Route: 048
     Dates: start: 20151229, end: 20160331
  5. MIRENA [Suspect]
     Active Substance: LEVONORGESTREL
     Indication: PRODUCT USED FOR UNKNOWN INDICATION
     Route: 015
     Dates: start: 20160129

REACTIONS (1)
  - Menorrhagia [Unknown]

NARRATIVE: CASE EVENT DATE: 201601
